FAERS Safety Report 16397080 (Version 1)
Quarter: 2019Q2

REPORT INFORMATION
  Report Type: Spontaneous
  Country: US (occurrence: US)
  Receive Date: 20190606
  Receipt Date: 20190606
  Transmission Date: 20190711
  Serious: No
  Sender: FDA-Public Use
  Company Number: US-009507513-1906USA001637

PATIENT
  Age: 36 Year
  Sex: Female

DRUGS (2)
  1. VITAMIN D (UNSPECIFIED) [Concomitant]
     Active Substance: VITAMIN D NOS
  2. FOLLISTIM AQ [Suspect]
     Active Substance: FOLLITROPIN
     Indication: INFERTILITY FEMALE
     Dosage: INJECT 225 TO 300 UNITS
     Route: 058
     Dates: start: 20190530

REACTIONS (2)
  - Peripheral swelling [Unknown]
  - Nausea [Unknown]

NARRATIVE: CASE EVENT DATE: 20190601
